FAERS Safety Report 10904083 (Version 2)
Quarter: 2015Q2

REPORT INFORMATION
  Report Type: Spontaneous
  Country: JP (occurrence: JP)
  Receive Date: 20150311
  Receipt Date: 20150505
  Transmission Date: 20150821
  Serious: No
  Sender: FDA-Public Use
  Company Number: JP-SA-2015SA028077

PATIENT

DRUGS (2)
  1. RASURITEK [Suspect]
     Active Substance: RASBURICASE
     Indication: LYMPHOMA
     Dosage: DURATION: 3-4 DAYS
     Route: 042
  2. RASURITEK [Suspect]
     Active Substance: RASBURICASE
     Indication: LYMPHOMA
     Route: 042

REACTIONS (1)
  - Drug ineffective [Unknown]
